FAERS Safety Report 9717931 (Version 2)
Quarter: 2013Q4

REPORT INFORMATION
  Report Type: Spontaneous
  Country: DE (occurrence: DE)
  Receive Date: 20131127
  Receipt Date: 20131210
  Transmission Date: 20140711
  Serious: Yes (Other)
  Sender: FDA-Public Use
  Company Number: DE-PFIZER INC-2013336481

PATIENT
  Age: 62 Year
  Sex: Female

DRUGS (18)
  1. RAMIPRIL [Suspect]
     Dosage: 10-7.5 MG, UNK
     Route: 048
     Dates: start: 20130411, end: 20130430
  2. RAMIPRIL [Interacting]
     Dosage: 5 MG, DAILY
     Route: 048
     Dates: start: 20130501
  3. QUETIAPINE FUMARATE [Suspect]
     Dosage: 50 MG, DAILY
     Route: 048
     Dates: start: 20130503, end: 20130624
  4. MIRTAZAPINE [Suspect]
     Dosage: 30 MG, DAILY
     Route: 048
     Dates: start: 20130406, end: 20130505
  5. MIRTAZAPINE [Suspect]
     Dosage: 15 MG, DAILY
     Route: 048
     Dates: start: 20130506, end: 20130511
  6. MIRTAZAPINE [Suspect]
     Dosage: 7.5 MG, DAILY
     Route: 048
     Dates: start: 20130512, end: 20130514
  7. LITHIUM CARBONATE [Interacting]
     Indication: DEPRESSION
     Dosage: 225 MG, DAILY
     Route: 048
     Dates: start: 20130426, end: 20130428
  8. LITHIUM CARBONATE [Interacting]
     Dosage: 450 MG, DAILY
     Route: 048
     Dates: start: 20130429, end: 20130501
  9. LITHIUM CARBONATE [Interacting]
     Dosage: 675 MG, DAILY
     Route: 048
     Dates: start: 20130502, end: 20130502
  10. LITHIUM CARBONATE [Interacting]
     Dosage: 225 MG, DAILY
     Route: 048
     Dates: start: 20130503
  11. HCT HEXAL [Interacting]
     Dosage: 12.5 MG, DAILY
     Route: 048
     Dates: start: 20130412, end: 20130604
  12. ELONTRIL [Suspect]
     Dosage: 300 MG, DAILY
     Route: 048
     Dates: start: 20130418
  13. LORAZEPAM [Concomitant]
     Dosage: UNK
     Dates: start: 20130406, end: 20130512
  14. CARVEDILOL [Concomitant]
     Dosage: UNK
     Dates: start: 20130409
  15. PANTOPRAZOLE [Concomitant]
     Dosage: UNK
     Dates: start: 20130406
  16. TRAMAL [Concomitant]
     Dosage: UNK
     Dates: start: 20130406, end: 20130624
  17. ZOPICLONE [Concomitant]
     Dosage: UNK
     Dates: start: 20130406
  18. L-THYROXIN [Concomitant]
     Dosage: UNK
     Dates: start: 20130423

REACTIONS (4)
  - Drug interaction [Recovered/Resolved]
  - Delirium [Recovered/Resolved]
  - Confusional state [Recovered/Resolved]
  - Psychomotor hyperactivity [Recovered/Resolved]
